FAERS Safety Report 20007365 (Version 6)
Quarter: 2021Q4

REPORT INFORMATION
  Report Type: Report from Study
  Country: DE (occurrence: DE)
  Receive Date: 20211028
  Receipt Date: 20211119
  Transmission Date: 20220303
  Serious: Yes (Death)
  Sender: FDA-Public Use
  Company Number: DE-CELGENE-DEU-20211007252

PATIENT
  Age: 68 Year
  Sex: Female
  Weight: 51 kg

DRUGS (12)
  1. LENALIDOMIDE [Suspect]
     Active Substance: LENALIDOMIDE
     Indication: Plasma cell myeloma
     Dosage: INDUCTION
     Route: 048
     Dates: start: 20190527, end: 20201222
  2. LENALIDOMIDE [Suspect]
     Active Substance: LENALIDOMIDE
     Dosage: CONSOLIDATION
     Route: 048
     Dates: start: 20200420, end: 20200510
  3. LENALIDOMIDE [Suspect]
     Active Substance: LENALIDOMIDE
     Dosage: CONSOLIDATION
     Route: 048
     Dates: start: 20200518, end: 20200817
  4. LENALIDOMIDE [Suspect]
     Active Substance: LENALIDOMIDE
     Dosage: MAINTENANCE
     Route: 048
     Dates: start: 202009, end: 20211007
  5. DEXAMETHASONE [Suspect]
     Active Substance: DEXAMETHASONE
     Indication: Plasma cell myeloma
     Dosage: 20 MILLIGRAM
     Route: 048
     Dates: start: 20190527, end: 20210818
  6. CARFILZOMIB [Suspect]
     Active Substance: CARFILZOMIB
     Indication: Plasma cell myeloma
     Dosage: INDUCTION
     Route: 041
     Dates: start: 20190527, end: 20190528
  7. CARFILZOMIB [Suspect]
     Active Substance: CARFILZOMIB
     Dosage: INDUCTION AND CONSOLIDATION
     Route: 041
     Dates: start: 20190603, end: 20200811
  8. ASPIRIN [Concomitant]
     Active Substance: ASPIRIN
     Indication: Thrombosis prophylaxis
     Dosage: 100 MILLIGRAM
     Route: 048
     Dates: end: 20211007
  9. AMLODIPINE BESYLATE [Concomitant]
     Active Substance: AMLODIPINE BESYLATE
     Indication: Hypertension
     Dosage: 5 MILLIGRAM
     Route: 048
     Dates: start: 20191111, end: 20211007
  10. CHOLECALCIFEROL [Concomitant]
     Active Substance: CHOLECALCIFEROL
     Indication: Nervous system disorder prophylaxis
     Dosage: 20 IU (INTERNATIONAL UNIT)
     Route: 048
     Dates: start: 201904, end: 202110
  11. ALENDRONAT [Concomitant]
     Active Substance: ALENDRONATE SODIUM
     Indication: Dental care
     Dosage: 70 MILLIGRAM
     Route: 048
     Dates: start: 202109, end: 202110
  12. novaminsulfonic acid [Concomitant]
     Indication: Pain
     Dosage: 500 MILLIGRAM
     Route: 048
     Dates: start: 2019

REACTIONS (1)
  - Pneumonia [Fatal]

NARRATIVE: CASE EVENT DATE: 20211007
